FAERS Safety Report 15533382 (Version 1)
Quarter: 2018Q4

REPORT INFORMATION
  Report Type: Spontaneous
  Country: US (occurrence: US)
  Receive Date: 20181019
  Receipt Date: 20181019
  Transmission Date: 20190205
  Serious: No
  Sender: FDA-Public Use
  Company Number: US-SA-2018SA287311

PATIENT
  Age: 64 Year
  Sex: Male
  Weight: 114.29 kg

DRUGS (1)
  1. ALIROCUMAB [Suspect]
     Active Substance: ALIROCUMAB
     Indication: TYPE IIA HYPERLIPIDAEMIA
     Dosage: UNK UNK, QOW
     Dates: start: 201808

REACTIONS (1)
  - Blood cholesterol increased [Unknown]

NARRATIVE: CASE EVENT DATE: 20180921
